FAERS Safety Report 7823717-5 (Version None)
Quarter: 2011Q4

REPORT INFORMATION
  Report Type: 
  Country: None (occurrence: None)
  Receive Date: 20111014
  Receipt Date: 20111006
  Transmission Date: 20120403
  Serious: Yes (Other)
  Sender: FDA-Public Use
  Company Number: NSR_00289_2011

PATIENT
  Age: 23 Year
  Sex: Male

DRUGS (1)
  1. LAMOTRIGINE [Suspect]
     Indication: BIPOLAR I DISORDER
     Dosage: (DF), (DF)

REACTIONS (8)
  - TOXIC EPIDERMAL NECROLYSIS [None]
  - RASH [None]
  - STREPTOCOCCAL INFECTION [None]
  - MALAISE [None]
  - DRUG ERUPTION [None]
  - STEVENS-JOHNSON SYNDROME [None]
  - OROPHARYNGEAL PAIN [None]
  - EOSINOPHILIA [None]
